FAERS Safety Report 7492409-7 (Version None)
Quarter: 2011Q2

REPORT INFORMATION
  Report Type: 
  Country: None (occurrence: None)
  Receive Date: 20110519
  Receipt Date: 20110508
  Transmission Date: 20111010
  Serious: Yes (Hospitalization, Other)
  Sender: FDA-Public Use
  Company Number: PHEH2007US15453

PATIENT
  Sex: Male
  Weight: 61.678 kg

DRUGS (46)
  1. DECADRON [Concomitant]
     Dosage: UNK
     Dates: start: 20040601, end: 20060701
  2. NAPROXEN [Concomitant]
     Dosage: 375 MG, UNK
  3. OXYCODONE HCL [Concomitant]
  4. PEPCID [Concomitant]
  5. LEVAQUIN [Concomitant]
  6. ZOMETA [Suspect]
     Dosage: 3.3 MG, QMO
     Dates: start: 20050419
  7. ZANTAC [Concomitant]
  8. NOVOLOG [Concomitant]
  9. CYCLOPHOSPHAMIDE [Concomitant]
     Dosage: 6800 MG, UNK
     Route: 042
  10. PERCOCET [Concomitant]
     Dosage: UNK
     Dates: start: 20051101
  11. SIMVASTATIN [Concomitant]
  12. AMLODIPINE [Concomitant]
  13. LISINOPRIL [Concomitant]
  14. NOVOLIN 70/30 [Concomitant]
  15. THALIDOMIDE [Concomitant]
     Dosage: UNK
     Dates: end: 20060101
  16. CEFEPIME [Concomitant]
     Dosage: 2 G, UNK
  17. NEUPOGEN [Concomitant]
     Dosage: 300 MCG
     Dates: start: 20030101, end: 20050112
  18. ACETAMINOPHEN [Concomitant]
  19. CHLORHEXIDINE [Concomitant]
  20. FILGRASTIM [Concomitant]
  21. LOPERAMIDE [Concomitant]
  22. DARVOCET-N 50 [Concomitant]
  23. ACYCLOVIR [Concomitant]
     Dosage: 400 MG, BID
     Dates: end: 20051129
  24. CYPROHEPTADINE HCL [Concomitant]
     Dosage: 4 MG, UNK
     Dates: start: 20050822, end: 20060822
  25. ARANESP [Concomitant]
     Dosage: 40 MCG/ML, UNK
     Route: 058
  26. ZOLPIDEM [Concomitant]
  27. FLUCONAZOLE [Concomitant]
     Dosage: 400 MG, DAILY
  28. AVELOX [Concomitant]
  29. TRIMETOPRIM-SULFA ^GEA^ [Concomitant]
     Dosage: UNK
     Dates: start: 20060726, end: 20060826
  30. CLINDAMYCIN HCL [Concomitant]
     Dosage: 150 MG, UNK
     Route: 048
  31. BACTRIM [Concomitant]
     Dosage: UNK
     Dates: start: 20050101
  32. FUROSEMIDE [Concomitant]
  33. MECLIZINE [Concomitant]
  34. ZOMETA [Suspect]
     Dosage: 3.5 MG, UNK
     Route: 042
     Dates: start: 20060411
  35. ZOMETA [Suspect]
     Dosage: 4 MG, UNK
     Route: 042
     Dates: start: 20060504
  36. OXYCODONE HCL AND ACETAMINOPHEN [Concomitant]
     Indication: PAIN
  37. MS CONTIN [Concomitant]
     Dosage: 30 MG, BID
     Route: 048
  38. REVLIMID [Concomitant]
  39. MORPHINE SULFATE [Concomitant]
     Indication: PAIN
     Dosage: 10 MG, UNK
     Dates: start: 20050126
  40. WARFARIN SODIUM [Concomitant]
     Dosage: 7.5 MG, UNK
  41. MELPHALAN HYDROCHLORIDE [Concomitant]
     Dosage: 200 MG, UNK
     Dates: start: 20050119
  42. DEXAMETHASONE [Concomitant]
  43. NIFEDIPINE [Concomitant]
  44. MSIR [Concomitant]
     Dosage: 15 MG, PRN
  45. MESNA [Concomitant]
     Dosage: 680 MG, UNK
     Route: 042
     Dates: start: 20041228
  46. RANITIDINE [Concomitant]

REACTIONS (33)
  - MASTICATION DISORDER [None]
  - RECTAL HAEMORRHAGE [None]
  - MUCOSAL INFLAMMATION [None]
  - ABSCESS JAW [None]
  - SPINAL OSTEOARTHRITIS [None]
  - THROMBOPHLEBITIS [None]
  - JAW DISORDER [None]
  - WEIGHT DECREASED [None]
  - NEUROPATHY PERIPHERAL [None]
  - OSTEONECROSIS OF JAW [None]
  - CELLULITIS [None]
  - ACIDOSIS HYPERCHLORAEMIC [None]
  - PAIN [None]
  - ANXIETY [None]
  - GINGIVAL PAIN [None]
  - HYPERKALAEMIA [None]
  - MYELOMA RECURRENCE [None]
  - OTITIS MEDIA [None]
  - INTERVERTEBRAL DISC PROTRUSION [None]
  - NEUTROPENIA [None]
  - PAIN IN JAW [None]
  - HYPOTENSION [None]
  - BONE PAIN [None]
  - INJURY [None]
  - ANHEDONIA [None]
  - BONE DISORDER [None]
  - BONE SWELLING [None]
  - TOOTH DISORDER [None]
  - EXTRASKELETAL OSSIFICATION [None]
  - SALIVARY GLAND ENLARGEMENT [None]
  - RENAL FAILURE ACUTE [None]
  - RENAL TUBULAR ACIDOSIS [None]
  - BONE LESION [None]
